FAERS Safety Report 8951017 (Version 1)
Quarter: 2012Q4

REPORT INFORMATION
  Report Type: Spontaneous
  Country: DK (occurrence: None)
  Receive Date: 20121129
  Receipt Date: 20121129
  Transmission Date: 20130627
  Serious: Yes (Other)
  Sender: FDA-Public Use
  Company Number: 2012MA013559

PATIENT
  Sex: Male

DRUGS (2)
  1. CITALOPRAM HYDROBROMIDE [Suspect]
     Indication: DRUG USE FOR UNKNOWN INDICATION
     Route: 048
  2. EBIXA [Suspect]
     Indication: DEMENTIA
     Route: 048

REACTIONS (3)
  - Wrong technique in drug usage process [None]
  - Mental impairment [None]
  - Abnormal behaviour [None]
